FAERS Safety Report 8241368-8 (Version None)
Quarter: 2012Q1

REPORT INFORMATION
  Report Type: 
  Country: None (occurrence: None)
  Receive Date: 20120328
  Receipt Date: 20120323
  Transmission Date: 20120608
  Serious: Yes (Death, Hospitalization)
  Sender: FDA-Public Use
  Company Number: PHHY2012DE025376

PATIENT
  Sex: Female
  Weight: 55 kg

DRUGS (16)
  1. ORAL ANTIDIABETICS [Concomitant]
     Indication: DIABETES MELLITUS
  2. DIURETICS [Concomitant]
     Dates: start: 20110525
  3. PANTOPRAZOLE [Suspect]
     Indication: ABDOMINAL DISCOMFORT
     Dosage: 1 DF, QD
     Dates: start: 20111004
  4. TORSEMIDE [Suspect]
     Indication: HYPERTENSION
     Dosage: 1 DF, QD
     Dates: start: 20111004
  5. SPIRIVA [Suspect]
     Indication: CHRONIC OBSTRUCTIVE PULMONARY DISEASE
     Dosage: 1 DF, QD
     Dates: start: 20111004
  6. BETA BLOCKING AGENTS [Concomitant]
     Dates: start: 20100422
  7. LANTUS [Suspect]
     Indication: DIABETES MELLITUS
     Dosage: 6 IU, DAILY
     Dates: start: 20111004
  8. ACE INHIBITORS [Concomitant]
  9. AMLODIPINE [Suspect]
     Indication: HYPERTENSION
     Dosage: 5 MG, DAILY
     Dates: start: 20111004
  10. HMG COA REDUCTASE INHIBITORS (STATINS) [Concomitant]
  11. CALCIUM CHANNEL BLOCKERS [Concomitant]
  12. SIMVASTATIN [Suspect]
     Indication: DIABETES MELLITUS
     Dosage: 1 DF, QD
     Dates: start: 20111004
  13. CLOPIDOGREL [Suspect]
     Indication: CORONARY ARTERY DISEASE
     Dosage: 75 MG, DAILY
     Dates: start: 20111004
  14. SIMVASTATIN [Suspect]
     Indication: HYPERCHOLESTEROLAEMIA
  15. NEPRESOL [Suspect]
     Indication: HYPERTENSION
     Dosage: 0.5 DF, QD
     Dates: start: 20111004
  16. PLATELET AGGREGATION INHIBITORS [Concomitant]

REACTIONS (2)
  - MULTI-ORGAN FAILURE [None]
  - RENAL FAILURE [None]
